FAERS Safety Report 18344516 (Version 1)
Quarter: 2020Q4

REPORT INFORMATION
  Report Type: Spontaneous
  Country: US (occurrence: US)
  Receive Date: 20201001
  Receipt Date: 20201001
  Transmission Date: 20210114
  Serious: Yes (Other)
  Sender: FDA-Public Use
  Company Number: None

PATIENT
  Age: 66 Year
  Sex: Female

DRUGS (2)
  1. PANTOPROZOLE 40MG (PANTOPRAZOLE) [Suspect]
     Active Substance: PANTOPRAZOLE
     Indication: OESOPHAGEAL SPASM
     Route: 048
     Dates: start: 20170728, end: 20200620
  2. TEMAZEPAM 45MG [Suspect]
     Active Substance: TEMAZEPAM
     Indication: INSOMNIA
     Route: 048
     Dates: start: 20161025, end: 20200930

REACTIONS (2)
  - Visual impairment [None]
  - Blindness [None]

NARRATIVE: CASE EVENT DATE: 20170801
